FAERS Safety Report 6958978-8 (Version None)
Quarter: 2010Q3

REPORT INFORMATION
  Report Type: 
  Country: None (occurrence: None)
  Receive Date: 20100831
  Receipt Date: 20100819
  Transmission Date: 20110219
  Serious: Yes (Other)
  Sender: FDA-Public Use
  Company Number: US-PFIZER INC-2010105542

PATIENT
  Sex: Female
  Weight: 49.89 kg

DRUGS (7)
  1. NEURONTIN [Suspect]
     Indication: FIBROMYALGIA
     Dosage: 100 MG, 1X/DAY
     Route: 048
     Dates: start: 20100623, end: 20100101
  2. NEURONTIN [Suspect]
     Dosage: 100 MG, 2X/DAY
     Route: 048
     Dates: start: 20100101, end: 20100101
  3. NEURONTIN [Suspect]
     Dosage: 200 MG, 2X/DAY
     Route: 048
     Dates: start: 20100101
  4. NAPROXEN [Suspect]
     Indication: BACK INJURY
     Dosage: UNK
     Dates: start: 20100701
  5. NAPROXEN [Suspect]
     Indication: BACK PAIN
  6. NAPROXEN [Suspect]
     Indication: PAIN
  7. XANAX [Concomitant]
     Dosage: 0.25 MG

REACTIONS (4)
  - ABDOMINAL PAIN UPPER [None]
  - BACK INJURY [None]
  - BACK PAIN [None]
  - PAIN [None]
